FAERS Safety Report 7809789-2 (Version None)
Quarter: 2011Q4

REPORT INFORMATION
  Report Type: 
  Country: None (occurrence: None)
  Receive Date: 20111006
  Receipt Date: 20110927
  Transmission Date: 20120403
  Serious: Yes (Other)
  Sender: FDA-Public Use
  Company Number: B0752662A

PATIENT
  Age: 75 Year
  Sex: Female

DRUGS (2)
  1. DIGOXIN [Suspect]
     Indication: RIGHT VENTRICULAR FAILURE
  2. ERYTHROMYCIN [Suspect]

REACTIONS (7)
  - BRADYCARDIA [None]
  - TOXICITY TO VARIOUS AGENTS [None]
  - DIARRHOEA [None]
  - NAUSEA [None]
  - DRUG INTERACTION [None]
  - HYPERKALAEMIA [None]
  - ATRIAL FIBRILLATION [None]
